FAERS Safety Report 16747173 (Version 1)
Quarter: 2019Q3

REPORT INFORMATION
  Report Type: Spontaneous
  Country: US (occurrence: US)
  Receive Date: 20190827
  Receipt Date: 20190827
  Transmission Date: 20191005
  Serious: No
  Sender: FDA-Public Use
  Company Number: US-SA-2019SA238311

PATIENT
  Age: 60 Year
  Sex: Male

DRUGS (1)
  1. PRALUENT [Suspect]
     Active Substance: ALIROCUMAB
     Indication: BLOOD CHOLESTEROL ABNORMAL
     Dosage: 75 MG, TWICE A MONTH
     Dates: start: 20190731

REACTIONS (3)
  - Headache [Recovered/Resolved]
  - Irritability [Unknown]
  - Product use issue [Unknown]

NARRATIVE: CASE EVENT DATE: 2019
